FAERS Safety Report 15813078 (Version 2)
Quarter: 2019Q3

REPORT INFORMATION
  Report Type: Report from Study
  Country: US (occurrence: US)
  Receive Date: 20190111
  Receipt Date: 20190722
  Transmission Date: 20191004
  Serious: Yes (Other)
  Sender: FDA-Public Use
  Company Number: US-ASTELLAS-2019US001136

PATIENT
  Age: 83 Year
  Sex: Male

DRUGS (2)
  1. ENZALUTAMIDE [Suspect]
     Active Substance: ENZALUTAMIDE
     Indication: PROSTATE CANCER
     Dosage: 160 MG (40 MG X 4 DF), ONCE DAILY
     Route: 048
     Dates: start: 2018
  2. ENZALUTAMIDE [Suspect]
     Active Substance: ENZALUTAMIDE
     Dosage: 120 MG (40 MG X 3 DF), ONCE DAILY
     Route: 048
     Dates: start: 20190123

REACTIONS (3)
  - Musculoskeletal chest pain [Unknown]
  - Hallucination, visual [Not Recovered/Not Resolved]
  - Headache [Unknown]

NARRATIVE: CASE EVENT DATE: 2018
